FAERS Safety Report 17456283 (Version 1)
Quarter: 2020Q1

REPORT INFORMATION
  Report Type: Spontaneous
  Country: US (occurrence: US)
  Receive Date: 20200225
  Receipt Date: 20200225
  Transmission Date: 20200409
  Serious: Yes (Other)
  Sender: FDA-Public Use
  Company Number: None

PATIENT
  Age: 70 Year
  Sex: Female
  Weight: 78.75 kg

DRUGS (14)
  1. EXCEDRIN [Concomitant]
     Active Substance: ACETAMINOPHEN\ASPIRIN\CAFFEINE
  2. EYE VITAMINS (LUTEIN) [Concomitant]
  3. PREGABALIN CAPS [Suspect]
     Active Substance: PREGABALIN
     Indication: NEURALGIA
     Dosage: ?          QUANTITY:3 CAPSULE(S);?
     Route: 048
     Dates: start: 20191224, end: 20200225
  4. CHONDROITIN [Concomitant]
     Active Substance: CHONDROITIN
  5. VITAMIN D [Concomitant]
     Active Substance: VITAMIN D NOS
  6. TYLENOL [Concomitant]
     Active Substance: ACETAMINOPHEN
  7. CALCIUM [Concomitant]
     Active Substance: CALCIUM
  8. ZINC. [Concomitant]
     Active Substance: ZINC
  9. HYALURONIC ACID [Concomitant]
     Active Substance: HYALURONIC ACID
  10. MAGNESIUM [Concomitant]
     Active Substance: MAGNESIUM
  11. TYPE II HYDROLYZED COLLAGEN [Concomitant]
  12. FISH OIL [Concomitant]
     Active Substance: FISH OIL
  13. SYNTHROID [Concomitant]
     Active Substance: LEVOTHYROXINE SODIUM
  14. CELEBREX [Concomitant]
     Active Substance: CELECOXIB

REACTIONS (8)
  - Insurance issue [None]
  - Condition aggravated [None]
  - Diarrhoea [None]
  - Product substitution issue [None]
  - Secretion discharge [None]
  - Intestinal haemorrhage [None]
  - Dehydration [None]
  - Vision blurred [None]

NARRATIVE: CASE EVENT DATE: 20191224
